FAERS Safety Report 4480530-7 (Version None)
Quarter: 2004Q4

REPORT INFORMATION
  Report Type: 
  Country: None (occurrence: None)
  Receive Date: 20041019
  Receipt Date: 20041006
  Transmission Date: 20050328
  Serious: Yes (Other)
  Sender: FDA-Public Use
  Company Number: 2004075897

PATIENT
  Age: 83 Year
  Sex: Male

DRUGS (5)
  1. DOXAZOSIN   (DOXAZOSIN) [Suspect]
     Indication: HYPERTENSION
     Dosage: 2 MG (2 MG, 1 IN 1 D), ORAL
     Route: 048
     Dates: start: 20040914, end: 20040914
  2. LOSARTAN          (LOSARTAN) [Concomitant]
  3. COSOPT         (DORZOLAMIDE HYDROCHLORIDE,TIMODOL MALEATE) [Concomitant]
  4. BIMATOPROST    (BIMATOPROST) [Concomitant]
  5. MAXIDEX (BENZALKONIUM CHLORIDE, DEXAMETHASONE, PHENYLMERCURIC NITRATE) [Concomitant]

REACTIONS (4)
  - CONFUSIONAL STATE [None]
  - DYSPHAGIA [None]
  - HEADACHE [None]
  - SPEECH DISORDER [None]
